FAERS Safety Report 4813825-5 (Version None)
Quarter: 2005Q4

REPORT INFORMATION
  Report Type: 
  Country: None (occurrence: None)
  Receive Date: 20051028
  Receipt Date: 20050325
  Transmission Date: 20060501
  Serious: No
  Sender: FDA-Public Use
  Company Number: US-GLAXOSMITHKLINE-A0551288A

PATIENT
  Age: 62 Year
  Sex: Male

DRUGS (4)
  1. ADVAIR DISKUS 100/50 [Suspect]
     Indication: CHRONIC OBSTRUCTIVE PULMONARY DISEASE
     Dosage: 1PUFF TWICE PER DAY
     Route: 055
     Dates: start: 20010401
  2. SINGULAIR [Concomitant]
  3. DUONEB [Concomitant]
     Route: 055
  4. COMBIVENT [Concomitant]

REACTIONS (4)
  - CANDIDIASIS [None]
  - DIZZINESS [None]
  - PHARYNGOLARYNGEAL PAIN [None]
  - POOR QUALITY DRUG ADMINISTERED [None]
